FAERS Safety Report 10247839 (Version 1)
Quarter: 2014Q2

REPORT INFORMATION
  Report Type: Spontaneous
  Country: US (occurrence: US)
  Receive Date: 20140619
  Receipt Date: 20140619
  Transmission Date: 20141212
  Serious: Yes (Other)
  Sender: FDA-Public Use
  Company Number: US-TEVA-488525USA

PATIENT
  Age: 53 Year
  Sex: Female

DRUGS (1)
  1. ESTRADIOL [Suspect]
     Indication: MENORRHAGIA
     Dosage: 8 MILLIGRAM DAILY;
     Dates: start: 20140315, end: 20140317

REACTIONS (5)
  - Deep vein thrombosis [Unknown]
  - Pulmonary embolism [Unknown]
  - Hysterectomy [Unknown]
  - Pain in extremity [Unknown]
  - Dyspnoea [Unknown]
